FAERS Safety Report 6710709-2 (Version None)
Quarter: 2010Q2

REPORT INFORMATION
  Report Type: 
  Country: None (occurrence: None)
  Receive Date: 20100504
  Receipt Date: 20100504
  Transmission Date: 20101027
  Serious: Yes (Other)
  Sender: FDA-Public Use
  Company Number: None

PATIENT
  Age: 7 Month
  Sex: Male
  Weight: 9.0719 kg

DRUGS (1)
  1. CONCENTRATED TYLENOL INFANT DROPS [Suspect]

REACTIONS (5)
  - CHOKING [None]
  - DRUG INEFFECTIVE [None]
  - NASAL DISORDER [None]
  - RETCHING [None]
  - RHINORRHOEA [None]
